FAERS Safety Report 8896346 (Version 1)
Quarter: 2012Q4

REPORT INFORMATION
  Report Type: Spontaneous
  Country: US (occurrence: None)
  Receive Date: 20121107
  Receipt Date: 20121107
  Transmission Date: 20130627
  Serious: Yes (Other)
  Sender: FDA-Public Use
  Company Number: None

PATIENT
  Sex: Female
  Weight: 49.9 kg

DRUGS (4)
  1. DOXYCYCLINE HYCLATE [Suspect]
     Indication: ACNE
     Route: 048
     Dates: start: 20070530, end: 20070717
  2. DOXYCYCLINE HYCLATE [Suspect]
     Indication: ACNE
     Dates: start: 20070819, end: 20071025
  3. DOXYCYCLINE HYCLATE [Suspect]
     Indication: ACNE
     Dates: start: 20080927, end: 20081226
  4. DOXYCYCLINE [Suspect]
     Dates: start: 20070718, end: 20070818

REACTIONS (3)
  - Abdominal pain upper [None]
  - Rectal haemorrhage [None]
  - Colitis ulcerative [None]
